FAERS Safety Report 6333379-4 (Version None)
Quarter: 2009Q3

REPORT INFORMATION
  Report Type: 
  Country: None (occurrence: None)
  Receive Date: 20090828
  Receipt Date: 20090820
  Transmission Date: 20100115
  Serious: Yes (Hospitalization, Other)
  Sender: FDA-Public Use
  Company Number: CA-ABBOTT-09P-028-0583373-00

PATIENT
  Sex: Male

DRUGS (7)
  1. KALETRA [Suspect]
     Indication: HIV INFECTION
     Route: 048
  2. SUSTIVA [Concomitant]
     Indication: DRUG USE FOR UNKNOWN INDICATION
  3. SEPTRA [Concomitant]
     Indication: DRUG USE FOR UNKNOWN INDICATION
  4. TRUVADA [Concomitant]
     Indication: DRUG USE FOR UNKNOWN INDICATION
  5. PANTOPRAZOLE SODIUM [Concomitant]
     Indication: DRUG USE FOR UNKNOWN INDICATION
  6. KIVEXA [Concomitant]
     Indication: DRUG USE FOR UNKNOWN INDICATION
     Route: 048
  7. APO-SULFATRIM [Concomitant]
     Indication: DRUG USE FOR UNKNOWN INDICATION
     Route: 048

REACTIONS (9)
  - DECREASED APPETITE [None]
  - DEHYDRATION [None]
  - FATIGUE [None]
  - HYPERAESTHESIA [None]
  - PAIN [None]
  - SURGERY [None]
  - UNEVALUABLE EVENT [None]
  - VISUAL ACUITY REDUCED [None]
  - WEIGHT DECREASED [None]
